FAERS Safety Report 5729472-7 (Version None)
Quarter: 2008Q2

REPORT INFORMATION
  Report Type: 
  Country: None (occurrence: None)
  Receive Date: 20080430
  Receipt Date: 20080219
  Transmission Date: 20081010
  Serious: No
  Sender: FDA-Public Use
  Company Number: 2008PV034316

PATIENT
  Age: 50 Year
  Sex: Male
  Weight: 99.7913 kg

DRUGS (4)
  1. SYMLIN [Suspect]
     Indication: DIABETES MELLITUS
     Dosage: SC
     Route: 058
     Dates: start: 20071201
  2. NOVOLOG [Concomitant]
  3. HUMALOG [Concomitant]
  4. XANAX [Concomitant]

REACTIONS (6)
  - BLOOD GLUCOSE INCREASED [None]
  - DRY EYE [None]
  - EYE IRRITATION [None]
  - LACRIMATION INCREASED [None]
  - PAIN IN EXTREMITY [None]
  - WEIGHT INCREASED [None]
